FAERS Safety Report 6405291-3 (Version None)
Quarter: 2009Q4

REPORT INFORMATION
  Report Type: 
  Country: None (occurrence: None)
  Receive Date: 20091016
  Receipt Date: 20091016
  Transmission Date: 20100525
  Serious: Yes (Hospitalization, Disabling)
  Sender: FDA-Public Use
  Company Number: None

PATIENT
  Sex: Female
  Weight: 53.5244 kg

DRUGS (1)
  1. ACTONEL [Suspect]
     Indication: BONE DENSITY DECREASED
     Dosage: 150 MG ONCE A MONTH ORAL
     Route: 048
     Dates: start: 20090825

REACTIONS (4)
  - ABASIA [None]
  - ARTHRALGIA [None]
  - DRUG EFFECT DECREASED [None]
  - MYALGIA [None]
